FAERS Safety Report 10542305 (Version 1)
Quarter: 2014Q4

REPORT INFORMATION
  Report Type: Spontaneous
  Country: US (occurrence: None)
  Receive Date: 20141010
  Receipt Date: 20141010
  Transmission Date: 20150529
  Serious: Yes (Hospitalization, Other)
  Sender: FDA-Public Use
  Company Number: 163-POMAL-14053464

PATIENT
  Age: 70 Year
  Sex: Male

DRUGS (3)
  1. BACTRIM DS (BACTRIM) [Concomitant]
  2. POMALYST [Suspect]
     Active Substance: POMALIDOMIDE
     Indication: PLASMA CELL MYELOMA
     Dosage: 21 IN 28 D
     Route: 048
     Dates: start: 20130912, end: 201405
  3. ACYALOVIR (ACICLOVIR) [Concomitant]

REACTIONS (4)
  - Pneumonia [None]
  - Atrial fibrillation [None]
  - Oedema peripheral [None]
  - Pruritus [None]

NARRATIVE: CASE EVENT DATE: 201405
